FAERS Safety Report 6714282-4 (Version None)
Quarter: 2010Q2

REPORT INFORMATION
  Report Type: 
  Country: None (occurrence: None)
  Receive Date: 20100506
  Receipt Date: 20100114
  Transmission Date: 20101027
  Serious: No
  Sender: FDA-Public Use
  Company Number: US-BAUSCH-2010BL000252

PATIENT
  Sex: Female

DRUGS (4)
  1. LOTEMAX [Suspect]
     Indication: EYE INFLAMMATION
     Route: 047
     Dates: start: 20100108
  2. LOTEMAX [Suspect]
     Indication: DRY EYE
     Route: 047
     Dates: start: 20100108
  3. LOTEMAX [Suspect]
     Indication: OFF LABEL USE
     Route: 047
     Dates: start: 20100108
  4. RESTASIS [Concomitant]

REACTIONS (1)
  - DRUG INEFFECTIVE [None]
